FAERS Safety Report 9390841 (Version 1)
Quarter: 2013Q3

REPORT INFORMATION
  Report Type: Report from Study
  Country: CL (occurrence: CL)
  Receive Date: 20130709
  Receipt Date: 20130709
  Transmission Date: 20140515
  Serious: Yes (Hospitalization)
  Sender: FDA-Public Use
  Company Number: PHHY2013CL067401

PATIENT
  Age: 71 Year
  Sex: Female

DRUGS (4)
  1. TAREG D [Suspect]
     Indication: HYPERTENSION
     Dosage: 160/25 MG, DAILY
     Route: 048
  2. DIGOXIN [Concomitant]
     Indication: CARDIAC DISORDER
     Dosage: UNK UKN, UNK
  3. EUTIROX [Concomitant]
     Indication: HYPOTHYROIDISM
     Dosage: UNK UKN, UNK
  4. FURDIUREN [Concomitant]
     Indication: DIURETIC THERAPY
     Dosage: UNK UKN, UNK

REACTIONS (2)
  - Bone disorder [Recovering/Resolving]
  - Osteoarthritis [Recovering/Resolving]
